FAERS Safety Report 7082581-5 (Version None)
Quarter: 2010Q3

REPORT INFORMATION
  Report Type: 
  Country: None (occurrence: None)
  Receive Date: 20100929
  Receipt Date: 20100625
  Transmission Date: 20110219
  Serious: No
  Sender: FDA-Public Use
  Company Number: US-WYE-H15879210

PATIENT
  Sex: Female

DRUGS (6)
  1. PRISTIQ [Suspect]
     Indication: DEPRESSED MOOD
     Dosage: SEE IMG
     Dates: start: 20100101, end: 20100101
  2. PRISTIQ [Suspect]
     Indication: PSYCHIATRIC SYMPTOM
     Dosage: SEE IMG
     Dates: start: 20100101, end: 20100101
  3. PRISTIQ [Suspect]
     Indication: DEPRESSED MOOD
     Dosage: SEE IMG
     Dates: start: 20100701, end: 20100101
  4. PRISTIQ [Suspect]
     Indication: PSYCHIATRIC SYMPTOM
     Dosage: SEE IMG
     Dates: start: 20100701, end: 20100101
  5. PRISTIQ [Suspect]
     Indication: DEPRESSED MOOD
     Dosage: SEE IMG
     Dates: start: 20100621, end: 20100701
  6. PRISTIQ [Suspect]
     Indication: PSYCHIATRIC SYMPTOM
     Dosage: SEE IMG
     Dates: start: 20100621, end: 20100701

REACTIONS (7)
  - ACTIVITIES OF DAILY LIVING IMPAIRED [None]
  - DRUG INEFFECTIVE [None]
  - FATIGUE [None]
  - HEADACHE [None]
  - INTENTIONAL DRUG MISUSE [None]
  - SOMNOLENCE [None]
  - WRONG TECHNIQUE IN DRUG USAGE PROCESS [None]
